FAERS Safety Report 7326030 (Version 5)
Quarter: 2018Q2

REPORT INFORMATION
  Report Type: Spontaneous
  Country: JP (occurrence: JP)
  Receive Date: 20100319
  Receipt Date: 20180620
  Transmission Date: 20180711
  Serious: Yes (Death, Other)
  Sender: FDA-Public Use
  Company Number: PHHY2010JP15257

PATIENT
  Age: 70 Year
  Sex: Female

DRUGS (5)
  1. ANTITHYMOCYTE IMMUNOGLOBULIN (RABBIT) [Suspect]
     Active Substance: LAPINE T-LYMPHOCYTE IMMUNE GLOBULIN
     Indication: APLASTIC ANAEMIA
     Dosage: UNK
     Route: 065
  2. NEORAL [Suspect]
     Active Substance: CYCLOSPORINE
     Indication: COELIAC DISEASE
     Dosage: UNK
     Route: 048
     Dates: start: 20100216
  3. SANDIMMUN [Concomitant]
     Active Substance: CYCLOSPORINE
     Indication: COELIAC DISEASE
     Dosage: UNK
     Route: 042
     Dates: start: 20100204, end: 20100215
  4. NEORAL [Suspect]
     Active Substance: CYCLOSPORINE
     Indication: APLASTIC ANAEMIA
  5. NEORAL [Suspect]
     Active Substance: CYCLOSPORINE
     Indication: GASTROINTESTINAL NEOPLASM

REACTIONS (6)
  - Lymphoma [Fatal]
  - Malaise [Fatal]
  - Metastases to lung [Fatal]
  - Pyrexia [Fatal]
  - Epstein-Barr virus associated lymphoproliferative disorder [Fatal]
  - Ileus [Unknown]

NARRATIVE: CASE EVENT DATE: 20100309
